FAERS Safety Report 7867728-2 (Version None)
Quarter: 2011Q4

REPORT INFORMATION
  Report Type: 
  Country: None (occurrence: None)
  Receive Date: 20111028
  Receipt Date: 20111025
  Transmission Date: 20120403
  Serious: Yes (Life-Threatening, Hospitalization, Other)
  Sender: FDA-Public Use
  Company Number: US-BAYER-200836220NA

PATIENT
  Age: 57 Year
  Sex: Male

DRUGS (12)
  1. BETASERON [Suspect]
     Indication: SECONDARY PROGRESSIVE MULTIPLE SCLEROSIS
     Dosage: 8 MIU, QOD
     Route: 058
     Dates: start: 20080115
  2. BETASERON [Suspect]
     Route: 058
  3. BETASERON [Suspect]
     Dosage: 8 MIU, QOD
     Route: 058
  4. RITALIN [Concomitant]
  5. BETASERON [Suspect]
     Dosage: 8 MIU, QOD
     Route: 058
     Dates: end: 20110627
  6. OXYCONTIN [Concomitant]
  7. COPAXONE [Suspect]
  8. BETASERON [Suspect]
     Dosage: 8 MIU, QOD
     Route: 058
     Dates: start: 20110708, end: 20110101
  9. ZOMIG [Concomitant]
     Indication: MIGRAINE
     Route: 048
  10. LACTULOSE [Concomitant]
  11. OXYCODONE HCL [Concomitant]
     Indication: BREAKTHROUGH PAIN
     Dosage: 5 MG, PRN EVERY 4 HOURS
  12. FENTANYL-100 [Concomitant]
     Indication: BREAKTHROUGH PAIN
     Dosage: 100 MG, Q72HR

REACTIONS (33)
  - WEIGHT DECREASED [None]
  - CARDIAC DISCOMFORT [None]
  - FATIGUE [None]
  - PERIPHERAL COLDNESS [None]
  - CAROTID ENDARTERECTOMY [None]
  - PRURITUS GENERALISED [None]
  - DECREASED APPETITE [None]
  - MUSCULAR WEAKNESS [None]
  - BOWEL MOVEMENT IRREGULARITY [None]
  - MUSCLE SPASMS [None]
  - LIGAMENT SPRAIN [None]
  - PALPITATIONS [None]
  - BURNING SENSATION [None]
  - WRIST FRACTURE [None]
  - RETINAL ARTERY EMBOLISM [None]
  - DYSPNOEA [None]
  - DEPRESSION [None]
  - APHAGIA [None]
  - SKIN DISCOLOURATION [None]
  - FRUSTRATION [None]
  - MYELITIS TRANSVERSE [None]
  - HEADACHE [None]
  - MULTIPLE SCLEROSIS [None]
  - PAIN IN EXTREMITY [None]
  - ABASIA [None]
  - SPEECH DISORDER [None]
  - MUSCLE DISORDER [None]
  - INSOMNIA [None]
  - SCOTOMA [None]
  - DEPRESSION SUICIDAL [None]
  - CONSTIPATION [None]
  - HAEMORRHAGE [None]
  - VISUAL ACUITY REDUCED [None]
